FAERS Safety Report 7462476-5 (Version None)
Quarter: 2011Q2

REPORT INFORMATION
  Report Type: 
  Country: None (occurrence: None)
  Receive Date: 20110506
  Receipt Date: 20101207
  Transmission Date: 20111010
  Serious: No
  Sender: FDA-Public Use
  Company Number: US-BAYER-2010-006600

PATIENT
  Age: 81 Year
  Sex: Female

DRUGS (1)
  1. AVELOX [Suspect]
     Indication: THROMBOSIS
     Dosage: 400 MG, QD
     Route: 048
     Dates: start: 20101001

REACTIONS (2)
  - INSOMNIA [None]
  - DRY MOUTH [None]
